FAERS Safety Report 25709279 (Version 1)
Quarter: 2025Q3

REPORT INFORMATION
  Report Type: Report from Study
  Country: MX (occurrence: MX)
  Receive Date: 20250821
  Receipt Date: 20250821
  Transmission Date: 20251021
  Serious: Yes (Death, Other)
  Sender: TAKEDA
  Company Number: MX-TAKEDA-MX202008455

PATIENT
  Age: 19 Year
  Sex: Male
  Weight: 33.1 kg

DRUGS (9)
  1. IDURSULFASE [Suspect]
     Active Substance: IDURSULFASE
     Indication: Mucopolysaccharidosis II
     Dosage: UNK DOSAGE FORM, 1/WEEK
     Dates: start: 20140820
  2. IDURSULFASE [Suspect]
     Active Substance: IDURSULFASE
     Dosage: UNK UNK, 1/WEEK
     Dates: start: 20140825
  3. IDURSULFASE [Suspect]
     Active Substance: IDURSULFASE
     Dosage: 6 MG /3 ML, 1/WEEK
     Dates: start: 20141107
  4. IDURSULFASE [Suspect]
     Active Substance: IDURSULFASE
     Dosage: UNK UNK, 1/WEEK
     Dates: start: 20150121
  5. IDURSULFASE [Suspect]
     Active Substance: IDURSULFASE
     Dosage: UNK UNK, 1/WEEK
     Dates: start: 20200228
  6. IDURSULFASE [Suspect]
     Active Substance: IDURSULFASE
     Dosage: UNK UNK, QD
  7. IDURSULFASE [Suspect]
     Active Substance: IDURSULFASE
     Dosage: UNK UNK, 1/WEEK
  8. IDURSULFASE [Suspect]
     Active Substance: IDURSULFASE
     Dosage: UNK UNK, 1/WEEK
     Dates: start: 202408
  9. IDURSULFASE [Suspect]
     Active Substance: IDURSULFASE
     Dosage: 6 MG /3 ML, 1/WEEK

REACTIONS (16)
  - Death [Fatal]
  - Malaise [Unknown]
  - Substance use [Not Recovered/Not Resolved]
  - Body temperature abnormal [Unknown]
  - Oxygen saturation decreased [Recovered/Resolved]
  - Incorrect dose administered [Not Recovered/Not Resolved]
  - Product availability issue [Recovered/Resolved]
  - Product dose omission issue [Not Recovered/Not Resolved]
  - Inappropriate schedule of product administration [Not Recovered/Not Resolved]
  - Circumstance or information capable of leading to medication error [Unknown]
  - Treatment noncompliance [Recovering/Resolving]
  - Nasopharyngitis [Recovering/Resolving]
  - Scoliosis [Not Recovered/Not Resolved]
  - Influenza [Not Recovered/Not Resolved]
  - Illness [Unknown]
  - Peripheral swelling [Recovering/Resolving]

NARRATIVE: CASE EVENT DATE: 20200131
